FAERS Safety Report 19972879 (Version 1)
Quarter: 2021Q4

REPORT INFORMATION
  Report Type: Spontaneous
  Country: US (occurrence: US)
  Receive Date: 20211018
  Receipt Date: 20211018
  Transmission Date: 20220303
  Serious: Yes (Death)
  Sender: FDA-Public Use
  Company Number: None

PATIENT
  Age: 78 Year
  Sex: Male

DRUGS (11)
  1. ESBRIET [Suspect]
     Active Substance: PIRFENIDONE
     Indication: Idiopathic pulmonary fibrosis
     Route: 048
     Dates: start: 20190726, end: 20210906
  2. B COMPLEX CAP [Concomitant]
  3. BAYER ASA TAB [Concomitant]
  4. CEFUROXIME TAB [Concomitant]
  5. EZETIMIBE TAB [Concomitant]
  6. FIBER CHW GUMMIES [Concomitant]
  7. LASIX TAB [Concomitant]
  8. LINZESS CAP [Concomitant]
  9. METAMUCIL POW [Concomitant]
  10. MULTIVITAMIN TAB ADLT 50+ [Concomitant]
  11. STOOL SOFTENER (DOCUSATE) [Concomitant]
     Active Substance: DOCUSATE

REACTIONS (1)
  - Death [None]

NARRATIVE: CASE EVENT DATE: 20210904
